FAERS Safety Report 10727369 (Version 2)
Quarter: 2015Q2

REPORT INFORMATION
  Report Type: Spontaneous
  Country: US (occurrence: US)
  Receive Date: 20150121
  Receipt Date: 20150518
  Transmission Date: 20150821
  Serious: Yes (Other)
  Sender: FDA-Public Use
  Company Number: US-ABBVIE-15P-163-1332093-00

PATIENT
  Age: 30 Year
  Sex: Female
  Weight: 63.11 kg

DRUGS (1)
  1. LUPRON DEPOT [Suspect]
     Active Substance: LEUPROLIDE ACETATE
     Indication: UTERINE LEIOMYOMA
     Route: 030
     Dates: start: 20140415, end: 20140721

REACTIONS (1)
  - Focal nodular hyperplasia [Unknown]

NARRATIVE: CASE EVENT DATE: 20140915
